FAERS Safety Report 11043014 (Version 1)
Quarter: 2015Q2

REPORT INFORMATION
  Report Type: Spontaneous
  Country: BR (occurrence: BR)
  Receive Date: 20150417
  Receipt Date: 20150417
  Transmission Date: 20150821
  Serious: Yes (Other)
  Sender: FDA-Public Use
  Company Number: BR-ASTRAZENECA-2015SE34780

PATIENT
  Age: 74 Year
  Sex: Female

DRUGS (2)
  1. ATACAND [Suspect]
     Active Substance: CANDESARTAN CILEXETIL
     Indication: HYPERTENSION
     Route: 048
     Dates: start: 20150411
  2. ATACAND HCT [Suspect]
     Active Substance: CANDESARTAN CILEXETIL\HYDROCHLOROTHIAZIDE
     Indication: HYPERTENSION
     Dosage: 8/12.5MG, 1/2 TABLET,BID
     Route: 048
     Dates: end: 20150410

REACTIONS (5)
  - Blood pressure fluctuation [Not Recovered/Not Resolved]
  - Dengue fever [Recovering/Resolving]
  - Off label use [Not Recovered/Not Resolved]
  - Pruritus generalised [Unknown]
  - Sunburn [Unknown]

NARRATIVE: CASE EVENT DATE: 2015
